FAERS Safety Report 7974166-0 (Version None)
Quarter: 2011Q4

REPORT INFORMATION
  Report Type: 
  Country: None (occurrence: None)
  Receive Date: 20111213
  Receipt Date: 20111212
  Transmission Date: 20120403
  Serious: Yes (Life-Threatening)
  Sender: FDA-Public Use
  Company Number: AU-B.I. PHARMACEUTICALS,INC./RIDGEFIELD-2011-AU-02357AU

PATIENT
  Sex: Male
  Weight: 81 kg

DRUGS (6)
  1. ZYPREXA [Concomitant]
     Dosage: 2.5 MG
     Dates: start: 20010101
  2. PRADAXA [Suspect]
     Indication: ATRIAL FIBRILLATION
     Dosage: 220 MG
     Dates: start: 20111011, end: 20111119
  3. DOXEPIN HCL [Concomitant]
     Dosage: 50 MG
     Dates: start: 19990101
  4. SIMVASTATIN [Concomitant]
     Dosage: 80 MG
     Dates: start: 20050101
  5. NIFEDIPINE [Concomitant]
     Dosage: 60 MG
     Dates: start: 20080101
  6. PERINDOPRIL ERBUMINE [Concomitant]
     Dosage: 10 MG
     Dates: start: 20080101

REACTIONS (2)
  - TRANSIENT ISCHAEMIC ATTACK [None]
  - VISUAL IMPAIRMENT [None]
